FAERS Safety Report 10372067 (Version 3)
Quarter: 2014Q3

REPORT INFORMATION
  Report Type: Report from Study
  Country: GB (occurrence: GB)
  Receive Date: 20140808
  Receipt Date: 20140922
  Transmission Date: 20150326
  Serious: Yes (Other)
  Sender: FDA-Public Use
  Company Number: GB-JNJFOC-20140715904

PATIENT
  Age: 31 Year
  Sex: Female
  Weight: 120 kg

DRUGS (3)
  1. PIRITON [Concomitant]
     Active Substance: CHLORPHENIRAMINE MALEATE
     Route: 048
     Dates: start: 20120703
  2. CITALOPRAM [Concomitant]
     Active Substance: CITALOPRAM HYDROBROMIDE
     Route: 048
     Dates: start: 20130410
  3. STELARA [Suspect]
     Active Substance: USTEKINUMAB
     Indication: PSORIASIS
     Route: 058
     Dates: start: 20140401

REACTIONS (8)
  - Hidradenitis [Unknown]
  - Bacterial vaginosis [Unknown]
  - Injection site vesicles [Recovered/Resolved]
  - Muscle injury [Unknown]
  - Psoriasis [Unknown]
  - Oral candidiasis [Unknown]
  - Vulvovaginal candidiasis [Unknown]
  - Hypokinesia [Recovered/Resolved]

NARRATIVE: CASE EVENT DATE: 2014
